FAERS Safety Report 6572570-9 (Version None)
Quarter: 2010Q1

REPORT INFORMATION
  Report Type: 
  Country: None (occurrence: None)
  Receive Date: 20100205
  Receipt Date: 20100128
  Transmission Date: 20100710
  Serious: Yes (Other)
  Sender: FDA-Public Use
  Company Number: GXKR2010AU01271

PATIENT
  Age: 25 Year
  Sex: Female

DRUGS (5)
  1. AZATHIOPRINE SODIUM [Suspect]
     Route: 065
  2. PREDNISOLONE [Suspect]
     Route: 065
  3. METHYLPREDNISOLONE [Suspect]
     Indication: ISCHAEMIA
     Dosage: PULSE
     Route: 065
  4. HEPARIN [Concomitant]
     Indication: ISCHAEMIA
     Route: 042
  5. PROSTAGLANDINS [Concomitant]
     Indication: ISCHAEMIA

REACTIONS (2)
  - PARTIAL SEIZURES [None]
  - REVERSIBLE POSTERIOR LEUKOENCEPHALOPATHY SYNDROME [None]
